APPROVED DRUG PRODUCT: PREGABALIN
Active Ingredient: PREGABALIN
Strength: 25MG
Dosage Form/Route: CAPSULE;ORAL
Application: A091040 | Product #001
Applicant: LUPIN LTD
Approved: May 3, 2022 | RLD: No | RS: No | Type: DISCN